FAERS Safety Report 5186332-0 (Version None)
Quarter: 2006Q4

REPORT INFORMATION
  Report Type: 
  Country: None (occurrence: None)
  Receive Date: 20061213
  Receipt Date: 20061201
  Transmission Date: 20070319
  Serious: Yes (Hospitalization)
  Sender: FDA-Public Use
  Company Number: 2006086223

PATIENT
  Age: 12 Year
  Sex: Female

DRUGS (6)
  1. FOSPHENYTOIN SODIUM [Suspect]
     Dosage: INTRAVENOUS
     Route: 042
     Dates: start: 20060620, end: 20060621
  2. DEPAKENE [Suspect]
     Dosage: 900 MG (300 MG, 3 IN 1 D), ORAL
     Route: 048
  3. DIAZEPAM [Concomitant]
  4. KEPPRA [Concomitant]
  5. CALCIFORTE (CALCIUM CHLORIDE DIHYDRATE, CALCIUM GLUCEPTATE, CALCIUM GL [Concomitant]
  6. ULCAR (SULCRALFATE) [Concomitant]

REACTIONS (4)
  - HAEMOGLOBIN DECREASED [None]
  - LEUKOPENIA [None]
  - PETECHIAE [None]
  - THROMBOCYTOPENIA [None]
